FAERS Safety Report 17068138 (Version 3)
Quarter: 2024Q3

REPORT INFORMATION
  Report Type: Spontaneous
  Country: DE (occurrence: DE)
  Receive Date: 20191122
  Receipt Date: 20240718
  Transmission Date: 20241017
  Serious: Yes (Hospitalization, Other)
  Sender: CELLTRION
  Company Number: DE-CELLTRION INC.-2019DE026643

PATIENT

DRUGS (70)
  1. RITUXIMAB [Suspect]
     Active Substance: RITUXIMAB
     Indication: Diffuse large B-cell lymphoma
     Dosage: 630 MG, UNK
     Route: 042
     Dates: start: 20180419, end: 20180419
  2. RITUXIMAB [Suspect]
     Active Substance: RITUXIMAB
     Dosage: 600 MG, UNK
     Route: 042
     Dates: start: 20180709, end: 20180709
  3. RITUXIMAB [Suspect]
     Active Substance: RITUXIMAB
     Dosage: 600 MG, UNK
     Route: 042
     Dates: start: 20180730, end: 20180730
  4. RITUXIMAB [Suspect]
     Active Substance: RITUXIMAB
     Dosage: 630 MG, UNK
     Route: 042
     Dates: start: 20180607, end: 20180607
  5. RITUXIMAB [Suspect]
     Active Substance: RITUXIMAB
     Dosage: 600 MG, UNK
     Route: 042
     Dates: start: 20180820, end: 20180820
  6. RITUXIMAB [Suspect]
     Active Substance: RITUXIMAB
     Dosage: 630 MG, UNK
     Route: 042
     Dates: start: 20180328, end: 20180328
  7. RITUXIMAB [Suspect]
     Active Substance: RITUXIMAB
     Dosage: 630 MG, UNK
     Route: 042
     Dates: start: 20180514, end: 20180514
  8. RITUXIMAB [Suspect]
     Active Substance: RITUXIMAB
     Indication: Diffuse large B-cell lymphoma
     Dosage: 630 MG, UNK (100MG HE0142 AND 500MG HP8754)
     Route: 041
     Dates: start: 20180328, end: 20180328
  9. RITUXIMAB [Suspect]
     Active Substance: RITUXIMAB
     Dosage: 630 MG, UNK
     Route: 041
     Dates: start: 20180419, end: 20180419
  10. RITUXIMAB [Suspect]
     Active Substance: RITUXIMAB
     Dosage: 630 MG, UNK
     Route: 041
     Dates: start: 20180419, end: 20180419
  11. RITUXIMAB [Suspect]
     Active Substance: RITUXIMAB
     Dosage: 630 MG, UNK
     Route: 041
     Dates: start: 20180514, end: 20180514
  12. RITUXIMAB [Suspect]
     Active Substance: RITUXIMAB
     Dosage: 630 MG, UNK
     Route: 041
     Dates: start: 20180514, end: 20180514
  13. RITUXIMAB [Suspect]
     Active Substance: RITUXIMAB
     Dosage: 630 MG, UNK
     Route: 041
     Dates: start: 20180607, end: 20180607
  14. RITUXIMAB [Suspect]
     Active Substance: RITUXIMAB
     Dosage: 630 MG, UNK
     Route: 041
     Dates: start: 20180607, end: 20180607
  15. RITUXIMAB [Suspect]
     Active Substance: RITUXIMAB
     Dosage: 600 MG, UNK
     Route: 041
     Dates: start: 20180709, end: 20180709
  16. RITUXIMAB [Suspect]
     Active Substance: RITUXIMAB
     Dosage: 600 MG, UNK
     Route: 041
     Dates: start: 20180709, end: 20180709
  17. RITUXIMAB [Suspect]
     Active Substance: RITUXIMAB
     Dosage: 600 MG, UNK
     Route: 041
     Dates: start: 20180730, end: 20180730
  18. RITUXIMAB [Suspect]
     Active Substance: RITUXIMAB
     Dosage: 600 MG, UNK
     Route: 041
     Dates: start: 20180730, end: 20180730
  19. RITUXIMAB [Suspect]
     Active Substance: RITUXIMAB
     Dosage: 600 MG, UNK
     Route: 041
     Dates: start: 20180820, end: 20180820
  20. RITUXIMAB [Suspect]
     Active Substance: RITUXIMAB
     Dosage: 600 MG, UNK
     Route: 041
     Dates: start: 20180910
  21. PREDNISONE [Suspect]
     Active Substance: PREDNISONE
     Indication: Diffuse large B-cell lymphoma
     Dosage: 400 MG, UNK
     Route: 048
     Dates: start: 20180421, end: 20180424
  22. PREDNISONE [Suspect]
     Active Substance: PREDNISONE
     Dosage: 400 MG, UNK
     Route: 048
     Dates: start: 20180711, end: 20180714
  23. PREDNISONE [Suspect]
     Active Substance: PREDNISONE
     Dosage: 400 MG, UNK
     Route: 048
     Dates: start: 20180609, end: 20180612
  24. PREDNISONE [Suspect]
     Active Substance: PREDNISONE
     Dosage: 400 MG, UNK
     Route: 048
     Dates: start: 20180516, end: 20180519
  25. PREDNISONE [Suspect]
     Active Substance: PREDNISONE
     Dosage: 400 MG, UNK
     Route: 048
     Dates: start: 20180802, end: 20180805
  26. PREDNISONE [Suspect]
     Active Substance: PREDNISONE
     Dosage: 400 MG, UNK
     Route: 048
     Dates: start: 20180329, end: 20180401
  27. VINCRISTINE [Suspect]
     Active Substance: VINCRISTINE
     Indication: Diffuse large B-cell lymphoma
     Dosage: 2 MG, (INFUSION RATE 16.66 ML/MIN FROM 12:15)
     Route: 041
     Dates: start: 20180420, end: 20180420
  28. VINCRISTINE [Suspect]
     Active Substance: VINCRISTINE
     Dosage: 2 MG, (INFUSION RATE 10 ML/MIN FROM 12:23 TO 12:33)
     Route: 041
     Dates: start: 20180329, end: 20180329
  29. VINCRISTINE [Suspect]
     Active Substance: VINCRISTINE
     Dosage: 2 MG, (INFUSION RATE 16.66 ML/MIN FROM 12:10 TO 12:20)
     Route: 041
     Dates: start: 20180608, end: 20180608
  30. VINCRISTINE [Suspect]
     Active Substance: VINCRISTINE
     Dosage: 2 MG, (INFUSION RATE 16.66 ML/MIN FROM 12:14)
     Route: 041
     Dates: start: 20180515, end: 20180515
  31. DOXORUBICIN [Suspect]
     Active Substance: DOXORUBICIN
     Indication: Diffuse large B-cell lymphoma
     Dosage: 85 MG, (INFUSION RATE 16.66 ML/MIN FROM 09:49)
     Route: 041
     Dates: start: 20180515, end: 20180515
  32. DOXORUBICIN [Suspect]
     Active Substance: DOXORUBICIN
     Dosage: 85 MG, (INFUSION RATE 10 ML/MIN FROM 09:35 TO 09:45)
     Route: 041
     Dates: start: 20180329, end: 20180329
  33. DOXORUBICIN [Suspect]
     Active Substance: DOXORUBICIN
     Dosage: 60 MG, UNK
     Route: 041
     Dates: start: 20180731, end: 20180731
  34. DOXORUBICIN [Suspect]
     Active Substance: DOXORUBICIN
     Dosage: 85 MG, (INFUSION RATE 16.66 ML/MIN FROM 10:02)
     Route: 041
     Dates: start: 20180420, end: 20180420
  35. DOXORUBICIN [Suspect]
     Active Substance: DOXORUBICIN
     Dosage: 85 MG, (INFUSION RATE 16.66 ML/MIN FROM 09:33 TO 09:43)
     Route: 041
     Dates: start: 20180608, end: 20180608
  36. DOXORUBICIN [Suspect]
     Active Substance: DOXORUBICIN
     Dosage: 60 MG, UNK
     Route: 041
     Dates: start: 20180710, end: 20180710
  37. CYCLOPHOSPHAMIDE [Suspect]
     Active Substance: CYCLOPHOSPHAMIDE
     Indication: Diffuse large B-cell lymphoma
     Dosage: 890 MG, UNK
     Route: 041
     Dates: start: 20180710, end: 20180710
  38. CYCLOPHOSPHAMIDE [Suspect]
     Active Substance: CYCLOPHOSPHAMIDE
     Dosage: 1250 MG, (INFUSION RATE 4.16 ML/MIN FROM 09:52 TO 11:52)
     Route: 041
     Dates: start: 20180608, end: 20180608
  39. CYCLOPHOSPHAMIDE [Suspect]
     Active Substance: CYCLOPHOSPHAMIDE
     Dosage: 1250 MG, (10:00-12:00)
     Route: 041
     Dates: start: 20180329, end: 20180329
  40. CYCLOPHOSPHAMIDE [Suspect]
     Active Substance: CYCLOPHOSPHAMIDE
     Dosage: 1250 MG, (INFUSION RATE 4.16 ML/MIN FROM 10:10)
     Route: 041
     Dates: start: 20180515, end: 20180515
  41. CYCLOPHOSPHAMIDE [Suspect]
     Active Substance: CYCLOPHOSPHAMIDE
     Dosage: 990 MG, UNK
     Route: 041
     Dates: start: 20180928, end: 20180928
  42. CYCLOPHOSPHAMIDE [Suspect]
     Active Substance: CYCLOPHOSPHAMIDE
     Dosage: 1250 MG, (INFUSION RATE 4.16 ML/MIN FROM 10:25)
     Route: 041
     Dates: start: 20180420, end: 20180420
  43. CYCLOPHOSPHAMIDE [Suspect]
     Active Substance: CYCLOPHOSPHAMIDE
     Dosage: 890 MG, UNK
     Route: 041
     Dates: start: 20180731, end: 20180731
  44. SIMVASTATIN [Concomitant]
     Active Substance: SIMVASTATIN
     Indication: Product used for unknown indication
     Dosage: 20 MG, UNK
     Route: 048
  45. FOLIC ACID [Concomitant]
     Active Substance: FOLIC ACID
     Indication: Mixed connective tissue disease
     Dosage: UNK
     Route: 048
     Dates: end: 20180327
  46. METHOTREXATE SODIUM [Concomitant]
     Active Substance: METHOTREXATE SODIUM
     Indication: Mixed connective tissue disease
     Dosage: UNK
     Route: 048
     Dates: start: 20180327, end: 20180327
  47. METHOTREXATE SODIUM [Concomitant]
     Active Substance: METHOTREXATE SODIUM
     Dosage: 10 MG, UNK
     Route: 048
     Dates: start: 20181001
  48. SULFAMETHOXAZOLE\TRIMETHOPRIM [Concomitant]
     Active Substance: SULFAMETHOXAZOLE\TRIMETHOPRIM
     Indication: Prophylaxis
     Dosage: 960 MG, UNK
     Route: 048
     Dates: start: 20180328, end: 20190206
  49. CHOLECALCIFEROL [Concomitant]
     Active Substance: CHOLECALCIFEROL
     Indication: General physical health deterioration
     Dosage: 20.000 OT, UNK
     Route: 048
  50. ATORVASTATIN [Concomitant]
     Active Substance: ATORVASTATIN
     Indication: Prophylaxis
     Dosage: 20 MG, UNK
     Route: 048
  51. ACETAMINOPHEN [Concomitant]
     Active Substance: ACETAMINOPHEN
     Indication: Prophylaxis
     Dosage: 1000 MG, UNK
     Route: 048
     Dates: start: 20180328
  52. LEVOTHYROXINE SODIUM [Concomitant]
     Active Substance: LEVOTHYROXINE SODIUM
     Indication: Hypothyroidism
     Dosage: 50 MG, UNK
     Route: 048
  53. ONDANSETRON [Concomitant]
     Active Substance: ONDANSETRON
     Indication: Prophylaxis
     Dosage: 8 MG, UNK
     Route: 048
     Dates: start: 20180328
  54. ACYCLOVIR [Concomitant]
     Active Substance: ACYCLOVIR
     Indication: Prophylaxis
     Dosage: 200 MG, UNK
     Route: 048
     Dates: start: 20180328, end: 20190206
  55. PREDNISOLONE [Concomitant]
     Active Substance: PREDNISOLONE
     Indication: Prophylaxis
     Dosage: 100 MG, UNK
     Route: 042
     Dates: start: 20180328
  56. PREDNISOLONE [Concomitant]
     Active Substance: PREDNISOLONE
     Indication: Mixed connective tissue disease
     Dosage: 10 MG, UNK
     Route: 048
     Dates: start: 20181001
  57. HYDROXYCHLOROQUINE [Concomitant]
     Active Substance: HYDROXYCHLOROQUINE
     Indication: Mixed connective tissue disease
     Dosage: 200 MG, UNK
     Route: 048
     Dates: start: 20180607
  58. HYDROXYCHLOROQUINE [Concomitant]
     Active Substance: HYDROXYCHLOROQUINE
     Dosage: 200 MG, UNK
     Route: 048
     Dates: start: 20180327
  59. GRANULOCYTE COLONY-STIMULATING FACTOR NOS [Concomitant]
     Active Substance: GRANULOCYTE COLONY-STIMULATING FACTOR NOS
     Indication: Prophylaxis
     Dosage: UNK
     Route: 058
     Dates: start: 20180723, end: 20180726
  60. GRANULOCYTE COLONY-STIMULATING FACTOR NOS [Concomitant]
     Active Substance: GRANULOCYTE COLONY-STIMULATING FACTOR NOS
     Indication: Pancytopenia
     Dosage: UNK
     Route: 058
     Dates: start: 20180810, end: 20180814
  61. GRANULOCYTE COLONY-STIMULATING FACTOR NOS [Concomitant]
     Active Substance: GRANULOCYTE COLONY-STIMULATING FACTOR NOS
     Indication: Leukopenia
     Dosage: UNK
     Route: 058
     Dates: start: 20180430, end: 20180503
  62. GRANULOCYTE COLONY-STIMULATING FACTOR NOS [Concomitant]
     Active Substance: GRANULOCYTE COLONY-STIMULATING FACTOR NOS
     Dosage: UNK
     Route: 058
     Dates: start: 20180802, end: 20180806
  63. GRANULOCYTE COLONY-STIMULATING FACTOR NOS [Concomitant]
     Active Substance: GRANULOCYTE COLONY-STIMULATING FACTOR NOS
     Dosage: UNK
     Route: 058
     Dates: start: 20180517, end: 20180522
  64. DIMETHINDENE [Concomitant]
     Active Substance: DIMETHINDENE
     Indication: Prophylaxis
     Dosage: 4 MG, UNK
     Route: 042
     Dates: start: 20180328
  65. MESNA [Concomitant]
     Active Substance: MESNA
     Indication: Prophylaxis
     Dosage: 400 OT, UNK
     Route: 048
     Dates: start: 20180328
  66. REVATIO [Concomitant]
     Active Substance: SILDENAFIL CITRATE
     Indication: Pulmonary fibrosis
     Dosage: UNK
     Route: 048
  67. MESNA [Concomitant]
     Active Substance: MESNA
     Indication: Prophylaxis
     Dosage: 400 MG, UNK
     Route: 042
     Dates: start: 20180329
  68. METHOTREXATE [Concomitant]
     Active Substance: METHOTREXATE
     Indication: Mixed connective tissue disease
     Dosage: UNK
     Route: 048
  69. GRANISETRON [Concomitant]
     Active Substance: GRANISETRON
     Indication: Prophylaxis
     Dosage: 1 MG, UNK
     Route: 042
     Dates: start: 20180329
  70. PANTOPRAZOLE SODIUM [Concomitant]
     Active Substance: PANTOPRAZOLE SODIUM
     Indication: General physical health deterioration
     Dosage: 40 MG, UNK
     Route: 048

REACTIONS (28)
  - General physical health deterioration [Recovered/Resolved]
  - Hypokalaemia [Recovered/Resolved]
  - Spinal fracture [Recovered/Resolved]
  - Spinal fracture [Recovered/Resolved]
  - Spinal fracture [Recovered/Resolved]
  - Hypotension [Recovered/Resolved]
  - Sepsis [Not Recovered/Not Resolved]
  - Neutropenia [Recovered/Resolved]
  - Pyrexia [Recovered/Resolved]
  - Anaemia [Recovered/Resolved]
  - Pancytopenia [Recovered/Resolved]
  - Fungal infection [Recovered/Resolved]
  - Thrombocytopenia [Recovered/Resolved]
  - Leukopenia [Recovered/Resolved]
  - Chronic hepatitis B [Not Recovered/Not Resolved]
  - Leukopenia [Recovered/Resolved]
  - Pancytopenia [Recovered/Resolved]
  - Dehydration [Unknown]
  - Fall [Recovered/Resolved]
  - General physical health deterioration [Recovered/Resolved]
  - Osteoarthritis [Not Recovered/Not Resolved]
  - Oral candidiasis [Recovered/Resolved]
  - Rash [Recovered/Resolved]
  - Hypotension [Recovered/Resolved]
  - Hypotension [Recovered/Resolved]
  - Urinary tract infection [Recovered/Resolved]
  - Overdose [Unknown]
  - Underdose [Unknown]

NARRATIVE: CASE EVENT DATE: 20180403
